FAERS Safety Report 7295440-X (Version None)
Quarter: 2011Q1

REPORT INFORMATION
  Report Type: 
  Country: None (occurrence: None)
  Receive Date: 20110216
  Receipt Date: 20110105
  Transmission Date: 20110831
  Serious: No
  Sender: FDA-Public Use
  Company Number: US-ABBOTT-11P-163-0695454-00

PATIENT
  Sex: Male
  Weight: 131.66 kg

DRUGS (2)
  1. SIMCOR [Suspect]
     Indication: PRODUCT USED FOR UNKNOWN INDICATION
     Dates: start: 20101124
  2. UNKNOWN MEDICATION [Concomitant]
     Indication: GOUT

REACTIONS (3)
  - PRURITUS [None]
  - RENAL PAIN [None]
  - SKIN IRRITATION [None]
